FAERS Safety Report 14765868 (Version 2)
Quarter: 2018Q2

REPORT INFORMATION
  Report Type: Spontaneous
  Country: US (occurrence: US)
  Receive Date: 20180416
  Receipt Date: 20180426
  Transmission Date: 20180711
  Serious: Yes (Other)
  Sender: FDA-Public Use
  Company Number: US-ALLERGAN-1820293US

PATIENT
  Age: 68 Year
  Sex: Male

DRUGS (1)
  1. RESTASIS [Suspect]
     Active Substance: CYCLOSPORINE
     Indication: DRY EYE
     Dosage: UNK, BID
     Route: 047
     Dates: start: 2008, end: 2010

REACTIONS (5)
  - Cataract operation [Recovered/Resolved]
  - Corneal operation [Recovered/Resolved]
  - Corneal operation [Recovered/Resolved]
  - Eye infection staphylococcal [Recovered/Resolved]
  - Intentional dose omission [Unknown]

NARRATIVE: CASE EVENT DATE: 2013
